FAERS Safety Report 14699790 (Version 1)
Quarter: 2018Q1

REPORT INFORMATION
  Report Type: Spontaneous
  Country: CN (occurrence: CN)
  Receive Date: 20180330
  Receipt Date: 20180330
  Transmission Date: 20180509
  Serious: Yes (Hospitalization)
  Sender: FDA-Public Use
  Company Number: PHHY2018CN030216

PATIENT
  Age: 39 Year
  Sex: Male

DRUGS (2)
  1. VANCOMYCIN [Suspect]
     Active Substance: VANCOMYCIN
     Indication: ENDOCARDITIS
     Dosage: 1.0 G, ONCE EVERY 12 HRS
     Route: 041
  2. PIPERACILLIN AND TAZOBACTAM [Suspect]
     Active Substance: PIPERACILLIN SODIUM\TAZOBACTAM SODIUM
     Indication: ENDOCARDITIS
     Dosage: 4.5 MG, ONCE  EVERY 8 HOURS
     Route: 041

REACTIONS (6)
  - Wheezing [Unknown]
  - Endocarditis [Unknown]
  - Cardiac failure [Recovering/Resolving]
  - Cyanosis [Unknown]
  - Condition aggravated [Unknown]
  - Therapeutic response decreased [Unknown]
